FAERS Safety Report 9857123 (Version 1)
Quarter: 2014Q1

REPORT INFORMATION
  Report Type: Spontaneous
  Country: US (occurrence: US)
  Receive Date: 20140130
  Receipt Date: 20140130
  Transmission Date: 20141002
  Serious: Yes (Other)
  Sender: FDA-Public Use
  Company Number: US-ABBVIE-14P-163-1194293-00

PATIENT
  Age: 35 Year
  Sex: Female

DRUGS (9)
  1. HUMIRA [Suspect]
     Indication: COLITIS ULCERATIVE
     Route: 058
     Dates: start: 20130110, end: 20130110
  2. HUMIRA [Suspect]
     Route: 058
     Dates: start: 20130124, end: 20130124
  3. HUMIRA [Suspect]
     Route: 058
     Dates: start: 201307
  4. AMBIEN [Concomitant]
     Indication: INSOMNIA
     Dosage: 5-10MG EVERY BED TIME
  5. SINGULAIR [Concomitant]
     Indication: ASTHMA
  6. CALCIUM VITAMIN D [Concomitant]
     Indication: VITAMIN SUPPLEMENTATION
  7. PRENATAL VITAMINS [Concomitant]
     Indication: PREGNANCY
  8. FISH OIL [Concomitant]
     Indication: PRODUCT USED FOR UNKNOWN INDICATION
  9. SUPER B COMPLEX [Concomitant]
     Indication: VITAMIN SUPPLEMENTATION

REACTIONS (3)
  - Smear cervix abnormal [Not Recovered/Not Resolved]
  - Cervical dysplasia [Not Recovered/Not Resolved]
  - Precancerous cells present [Not Recovered/Not Resolved]
